FAERS Safety Report 5652725-8 (Version None)
Quarter: 2008Q1

REPORT INFORMATION
  Report Type: 
  Country: None (occurrence: None)
  Receive Date: 20080305
  Receipt Date: 20080305
  Transmission Date: 20080703
  Serious: Yes (Hospitalization)
  Sender: FDA-Public Use
  Company Number: None

PATIENT
  Sex: Female
  Weight: 97.3 kg

DRUGS (2)
  1. CARBOPLATIN [Suspect]
     Dosage: 725 MG
     Dates: start: 20071113, end: 20071113
  2. TAXOL [Suspect]
     Dosage: 311.5 MG
     Dates: end: 20071113

REACTIONS (8)
  - ABDOMINAL ABSCESS [None]
  - ANAEMIA [None]
  - BLOOD PRESSURE DECREASED [None]
  - FISTULA [None]
  - HYPOKALAEMIA [None]
  - LARGE INTESTINAL ULCER [None]
  - SYNCOPE [None]
  - THROMBOCYTOPENIA [None]
